FAERS Safety Report 9489335 (Version 2)
Quarter: 2013Q3

REPORT INFORMATION
  Report Type: Spontaneous
  Country: US (occurrence: US)
  Receive Date: 20130829
  Receipt Date: 20130829
  Transmission Date: 20140515
  Serious: Yes (Disabling, Other)
  Sender: FDA-Public Use
  Company Number: PHHY2013US037146

PATIENT
  Age: 34 Year
  Sex: Male

DRUGS (3)
  1. TACROLIMUS [Suspect]
     Indication: IMMUNOSUPPRESSANT DRUG THERAPY
     Dosage: 5.5 MG, DAILY
  2. PREDNISONE [Suspect]
     Indication: IMMUNOSUPPRESSANT DRUG THERAPY
     Dosage: 5 MG, DAILY
  3. AMLODIPINE [Concomitant]
     Dosage: 5 MG, UNK

REACTIONS (6)
  - Post transplant distal limb syndrome [Recovering/Resolving]
  - Arthralgia [Recovering/Resolving]
  - Pain [Recovered/Resolved]
  - Gait disturbance [Recovered/Resolved]
  - Bone marrow oedema [Recovering/Resolving]
  - Osteonecrosis [Unknown]
